FAERS Safety Report 6862058-X (Version None)
Quarter: 2010Q3

REPORT INFORMATION
  Report Type: 
  Country: None (occurrence: None)
  Receive Date: 20100721
  Receipt Date: 20100709
  Transmission Date: 20110219
  Serious: Yes (Other)
  Sender: FDA-Public Use
  Company Number: CA-JNJFOC-20100703380

PATIENT
  Sex: Female
  Weight: 73 kg

DRUGS (4)
  1. REMICADE [Suspect]
     Indication: CROHN'S DISEASE
     Route: 042
  2. REMICADE [Suspect]
     Route: 042
  3. BENADRYL [Concomitant]
     Route: 042
  4. SOLU-CORTEF [Concomitant]
     Route: 042

REACTIONS (1)
  - OVARIAN MASS [None]
